FAERS Safety Report 5423658-7 (Version None)
Quarter: 2007Q3

REPORT INFORMATION
  Report Type: 
  Country: None (occurrence: None)
  Receive Date: 20070823
  Receipt Date: 20070816
  Transmission Date: 20080115
  Serious: Yes (Other)
  Sender: FDA-Public Use
  Company Number: A0671309A

PATIENT
  Sex: Female

DRUGS (1)
  1. WELLBUTRIN XL [Suspect]
     Indication: DRUG USE FOR UNKNOWN INDICATION
     Dosage: 300MG IN THE MORNING
     Route: 048

REACTIONS (5)
  - ANGER [None]
  - ANXIETY [None]
  - CRYING [None]
  - MEDICATION ERROR [None]
  - SUICIDAL IDEATION [None]
